FAERS Safety Report 12671782 (Version 1)
Quarter: 2016Q3

REPORT INFORMATION
  Report Type: Spontaneous
  Country: US (occurrence: None)
  Receive Date: 20160819
  Receipt Date: 20160819
  Transmission Date: 20161109
  Serious: No
  Sender: FDA-Public Use
  Company Number: None

PATIENT
  Age: 61 Year
  Sex: Female

DRUGS (1)
  1. RIBAVIRIN TAB 200MG [Suspect]
     Active Substance: RIBAVIRIN
     Indication: CHRONIC HEPATITIS C

REACTIONS (3)
  - Arthritis [None]
  - Back pain [None]
  - Neck pain [None]

NARRATIVE: CASE EVENT DATE: 20160818
